FAERS Safety Report 20724569 (Version 3)
Quarter: 2025Q3

REPORT INFORMATION
  Report Type: Spontaneous
  Country: US (occurrence: US)
  Receive Date: 20220419
  Receipt Date: 20250725
  Transmission Date: 20251021
  Serious: Yes (Other)
  Sender: PFIZER
  Company Number: US-PFIZER INC-2020162933

PATIENT
  Age: 51 Year
  Sex: Female
  Weight: 90.72 kg

DRUGS (22)
  1. XELJANZ [Suspect]
     Active Substance: TOFACITINIB CITRATE
     Indication: Rheumatoid arthritis
     Dosage: 5 MG, 2X/DAY(ONE TABLET IN THE MORNING AND ONE TABLET AT NIGHT)
     Route: 048
  2. XELJANZ [Suspect]
     Active Substance: TOFACITINIB CITRATE
     Dosage: 5 MG ORAL TWICE DAILY
     Route: 048
     Dates: start: 2018
  3. SYNTHROID [Concomitant]
     Active Substance: LEVOTHYROXINE SODIUM
  4. FLUOXETINE HYDROCHLORIDE [Concomitant]
     Active Substance: FLUOXETINE HYDROCHLORIDE
  5. COLCHICINE [Concomitant]
     Active Substance: COLCHICINE
  6. TYLENOL [Concomitant]
     Active Substance: ACETAMINOPHEN
  7. VITAMIN E [Concomitant]
     Active Substance: .ALPHA.-TOCOPHEROL
  8. IBANDRONATE SODIUM [Concomitant]
     Active Substance: IBANDRONATE SODIUM
  9. MAGNESIUM COMPLEX [ASCORBIC ACID;MAGNESIUM;PYRIDOXINE HYDROCHLORIDE] [Concomitant]
  10. PREDNISONE [Concomitant]
     Active Substance: PREDNISONE
  11. ALLOPURINOL [Concomitant]
     Active Substance: ALLOPURINOL
  12. EZETIMIBE [Concomitant]
     Active Substance: EZETIMIBE
  13. POTASSIUM [Concomitant]
     Active Substance: POTASSIUM
  14. VITAMIN C [Concomitant]
     Active Substance: ASCORBIC ACID
  15. IRON [Concomitant]
     Active Substance: IRON
  16. OMEPRAZOLE [Concomitant]
     Active Substance: OMEPRAZOLE
  17. VITAMIN B12 [Concomitant]
     Active Substance: CYANOCOBALAMIN
  18. VITAMIN D3 [Concomitant]
     Active Substance: CHOLECALCIFEROL
  19. ROSUVASTATIN CALCIUM [Concomitant]
     Active Substance: ROSUVASTATIN CALCIUM
  20. LEFLUNOMIDE [Concomitant]
     Active Substance: LEFLUNOMIDE
  21. GABAPENTIN [Concomitant]
     Active Substance: GABAPENTIN
  22. KIRKLAND SIGNATURE ALLERCLEAR [Concomitant]
     Active Substance: LORATADINE

REACTIONS (3)
  - Knee arthroplasty [Unknown]
  - Drug ineffective [Unknown]
  - Hypoacusis [Not Recovered/Not Resolved]
